FAERS Safety Report 8818684 (Version 1)
Quarter: 2012Q4

REPORT INFORMATION
  Report Type: Spontaneous
  Country: US (occurrence: None)
  Receive Date: 20121004
  Receipt Date: 20121004
  Transmission Date: 20130627
  Serious: Yes (Life-Threatening, Hospitalization)
  Sender: FDA-Public Use
  Company Number: None

PATIENT
  Age: 72 Year
  Sex: Female
  Weight: 79.5 kg

DRUGS (2)
  1. ZOCOR [Suspect]
     Dosage: 1  TABLET ORAL-047
     Route: 048
     Dates: start: 2004, end: 201201
  2. LIPITOR [Suspect]
     Dosage: 1  TABLET ORAL-047
     Route: 048
     Dates: start: 201201, end: 20120613

REACTIONS (3)
  - Chronic obstructive pulmonary disease [None]
  - General physical health deterioration [None]
  - Fatigue [None]
